FAERS Safety Report 8855879 (Version 1)
Quarter: 2012Q4

REPORT INFORMATION
  Report Type: 
  Country: US (occurrence: US)
  Receive Date: 20121023
  Receipt Date: 20121023
  Transmission Date: 20130627
  Serious: No
  Sender: FDA-Public Use
  Company Number: US-AMGEN-USASP2012058879

PATIENT
  Age: 62 Year
  Sex: Female
  Weight: 86.17 kg

DRUGS (9)
  1. ENBREL [Suspect]
     Indication: PRODUCT USED FOR UNKNOWN INDICATION
     Dosage: 50 mg, 2 times/wk
     Route: 058
  2. BENAZEPRIL [Concomitant]
     Dosage: 2 mg, UNK
  3. ATENOLOL [Concomitant]
     Dosage: 25 mg, UNK
  4. FENOFIBRATE [Concomitant]
     Dosage: 67 mg, UNK
  5. FISH OIL [Concomitant]
     Dosage: UNK
  6. PROBIOTIC                          /06395501/ [Concomitant]
     Dosage: UNK
  7. TYLENOL /00020001/ [Concomitant]
     Dosage: 325 mg, UNK
  8. ALEVE [Concomitant]
     Dosage: 220 mg, UNK
  9. MULTIVITAMINS, PLAIN [Concomitant]
     Dosage: UNK

REACTIONS (1)
  - Localised infection [Recovered/Resolved]
